FAERS Safety Report 5739028-8 (Version None)
Quarter: 2008Q2

REPORT INFORMATION
  Report Type: 
  Country: None (occurrence: None)
  Receive Date: 20080515
  Receipt Date: 20080409
  Transmission Date: 20081010
  Serious: No
  Sender: FDA-Public Use
  Company Number: US-BAYER-200819901NA

PATIENT
  Age: 43 Year
  Sex: Female
  Weight: 86 kg

DRUGS (6)
  1. MAGNEVIST [Suspect]
     Indication: NUCLEAR MAGNETIC RESONANCE IMAGING BRAIN
     Dosage: TOTAL DAILY DOSE: 13 ML
     Dates: start: 20080408, end: 20080408
  2. OXYCONTIN [Concomitant]
  3. LASIX [Concomitant]
  4. PAXIL [Concomitant]
  5. OXYCODON [Concomitant]
  6. EXCEDRIN (MIGRAINE) [Concomitant]

REACTIONS (1)
  - FLUSHING [None]
